FAERS Safety Report 9240538 (Version 2)
Quarter: 2013Q2

REPORT INFORMATION
  Report Type: Spontaneous
  Country: US (occurrence: None)
  Receive Date: 20130415
  Receipt Date: 20130531
  Transmission Date: 20140414
  Serious: Yes (Hospitalization, Disabling)
  Sender: FDA-Public Use
  Company Number: 2012034295

PATIENT
  Sex: Female
  Weight: 90.72 kg

DRUGS (11)
  1. PRIVIGEN [Suspect]
     Indication: HYPOGAMMAGLOBULINAEMIA
     Dosage: 1X/MONTH, DIVIDED OVER 2 DAYS IV (NOT OTHERWISE SPECIFIED, 35 G 1X/MTH, 5 GM VIAL; 10% CONCEMTRATION DIVIDED OVER 2 D IV (NOT OTHERWISE SPECIFIED), 35 G 1X/MTH IV (NOT OTHERWISE SPECIFIED), 35 G 1X/MTH, 5 GM VIAL; DIVIDE OVER 2 D IV (NOT OTHERWISE SPECIFIED)
     Route: 042
     Dates: start: 20130115, end: 20130115
  2. VERAPAMIL (VERAPAMIL) [Concomitant]
  3. XOPENEX (LEVOSALBUTAMOL) [Concomitant]
  4. SINGULAIR [Concomitant]
  5. ADVAIR (SERETIDE) [Concomitant]
  6. MUCINEX (GUAIFENESIN) [Concomitant]
  7. ACETAMINOPHEN (PARACETAMOL) [Concomitant]
  8. SODIUM CHLORIDE [Concomitant]
  9. EIP-PEN (EPINEPHRINE HYDROCHLORIDE) [Concomitant]
  10. HEPARIN (HEPARIN) [Concomitant]
  11. AUGMENTIN (AUGMENTIN /00756801/) [Concomitant]

REACTIONS (10)
  - Chills [None]
  - Infusion related reaction [None]
  - Muscular weakness [None]
  - Dysstasia [None]
  - Herpes zoster [None]
  - Asthma [None]
  - Stress [None]
  - Blood pressure increased [None]
  - Heart rate increased [None]
  - Fatigue [None]
